FAERS Safety Report 18568550 (Version 4)
Quarter: 2021Q2

REPORT INFORMATION
  Report Type: Spontaneous
  Country: US (occurrence: US)
  Receive Date: 20201202
  Receipt Date: 20210504
  Transmission Date: 20210717
  Serious: Yes (Hospitalization, Other)
  Sender: FDA-Public Use
  Company Number: US-PIRAMAL PHARMA LIMITED-2020-PEL-000705

PATIENT

DRUGS (7)
  1. GABLOFEN [Suspect]
     Active Substance: BACLOFEN
     Dosage: 590 MICROGRAM PER DAY
     Route: 037
     Dates: start: 20201030, end: 20201030
  2. GABLOFEN [Suspect]
     Active Substance: BACLOFEN
     Dosage: 490.4 MICROGRAM PER DAY IN THE MORNING
     Route: 037
     Dates: start: 20201031, end: 20201031
  3. GABLOFEN [Suspect]
     Active Substance: BACLOFEN
     Indication: MUSCLE SPASTICITY
     Dosage: 668.6 MICROGRAM PER DAY
     Route: 037
     Dates: end: 202010
  4. GABLOFEN [Suspect]
     Active Substance: BACLOFEN
     Dosage: 599.577 MICROGRAM/DAY
     Route: 037
  5. BACLOFEN. [Concomitant]
     Active Substance: BACLOFEN
     Indication: MUSCLE SPASTICITY
     Dosage: UNK MILLIGRAM
     Route: 048
  6. GABLOFEN [Suspect]
     Active Substance: BACLOFEN
     Dosage: 389.7 MICROGRAM PER DAY IN THE AFTERNOON
     Route: 037
     Dates: start: 20201031, end: 20201031
  7. BACLOFEN. [Concomitant]
     Active Substance: BACLOFEN
     Indication: WITHDRAWAL SYNDROME
     Dosage: 30 MILLIGRAM EVERY 6 HOUR
     Route: 048
     Dates: start: 20201103

REACTIONS (4)
  - Urinary tract infection [Recovered/Resolved]
  - Implant site infection [Recovered/Resolved]
  - Abdominal abscess [Recovered/Resolved]
  - Staphylococcal infection [Recovered/Resolved]

NARRATIVE: CASE EVENT DATE: 20201027
